FAERS Safety Report 5943201-3 (Version None)
Quarter: 2008Q4

REPORT INFORMATION
  Report Type: 
  Country: None (occurrence: None)
  Receive Date: 20081106
  Receipt Date: 20081103
  Transmission Date: 20090506
  Serious: Yes (Hospitalization)
  Sender: FDA-Public Use
  Company Number: B0541323A

PATIENT
  Age: 81 Year
  Sex: Male
  Weight: 77.6 kg

DRUGS (1)
  1. LAMOTRIGINE [Suspect]
     Indication: EPILEPSY
     Dosage: 25MG PER DAY
     Route: 048
     Dates: start: 20080814, end: 20081011

REACTIONS (4)
  - BALANCE DISORDER [None]
  - CONVULSION [None]
  - HEAD INJURY [None]
  - URINARY INCONTINENCE [None]
